FAERS Safety Report 8419351-9 (Version None)
Quarter: 2012Q2

REPORT INFORMATION
  Report Type: 
  Country: None (occurrence: None)
  Receive Date: 20120601
  Receipt Date: 20120521
  Transmission Date: 20120825
  Serious: Yes (Other)
  Sender: FDA-Public Use
  Company Number: GGEL20120400463

PATIENT
  Age: 37 Year
  Sex: Female
  Weight: 63.5036 kg

DRUGS (5)
  1. BUPROFEN HC1 (BUPROPION) [Concomitant]
  2. STRATTERA (ATOMOXETINE) (ATOMOXETINE) [Concomitant]
  3. NORGESTIMATE AND ETHINYL ESTRADIOL [Suspect]
     Indication: CONTRACEPTION
     Dosage: 0.18/0.35 MG, ONCE A DAY, ORAL
     Route: 048
     Dates: end: 20120221
  4. METHYLPHENIDATE (METHYLPHENIDATE) (METHYLPHENIDATE) [Concomitant]
  5. NORGESTIMATE AND ETHINYL ESTRADIOL [Suspect]

REACTIONS (8)
  - HAEMATOCRIT DECREASED [None]
  - DRUG INEFFECTIVE [None]
  - PREGNANCY ON ORAL CONTRACEPTIVE [None]
  - MATERNAL EXPOSURE DURING PREGNANCY [None]
  - HAEMOGLOBIN DECREASED [None]
  - WHITE BLOOD CELL COUNT INCREASED [None]
  - RED BLOOD CELL COUNT DECREASED [None]
  - PRODUCT QUALITY ISSUE [None]
